FAERS Safety Report 8305806-4 (Version None)
Quarter: 2012Q2

REPORT INFORMATION
  Report Type: 
  Country: None (occurrence: None)
  Receive Date: 20120423
  Receipt Date: 20120417
  Transmission Date: 20120825
  Serious: Yes (Death, Hospitalization)
  Sender: FDA-Public Use
  Company Number: IL-PFIZER INC-2012095163

PATIENT
  Age: 87 Year
  Sex: Female

DRUGS (2)
  1. CARBOPLATIN [Suspect]
     Indication: NEUROENDOCRINE CARCINOMA OF THE SKIN
     Dosage: AUC 5 ON DAY 1, EVERY WEEK
  2. ETOPOSIDE [Suspect]
     Indication: NEUROENDOCRINE CARCINOMA OF THE SKIN
     Dosage: 75 MG/M2, ON DAYS 1-3, EVERY WEEK

REACTIONS (4)
  - PANCYTOPENIA [None]
  - RENAL FAILURE ACUTE [None]
  - TUMOUR LYSIS SYNDROME [None]
  - DRUG CLEARANCE DECREASED [None]
